FAERS Safety Report 8204596-3 (Version None)
Quarter: 2012Q1

REPORT INFORMATION
  Report Type: 
  Country: None (occurrence: None)
  Receive Date: 20120313
  Receipt Date: 20120307
  Transmission Date: 20120608
  Serious: Yes (Other)
  Sender: FDA-Public Use
  Company Number: US-PFIZER INC-2012062156

PATIENT
  Sex: Female

DRUGS (2)
  1. LYRICA [Suspect]
     Dosage: 50 MG, UNK
     Dates: start: 20110901
  2. LYRICA [Suspect]
     Dosage: 75 MG, 2X/DAY

REACTIONS (4)
  - BRONCHITIS [None]
  - EAR DISORDER [None]
  - DRUG INEFFECTIVE [None]
  - PAIN [None]
